FAERS Safety Report 12952572 (Version 1)
Quarter: 2016Q4

REPORT INFORMATION
  Report Type: Spontaneous
  Country: FR (occurrence: FR)
  Receive Date: 20161117
  Receipt Date: 20161117
  Transmission Date: 20170207
  Serious: Yes (Life-Threatening, Hospitalization, Other)
  Sender: FDA-Public Use
  Company Number: FR-BRISTOL-MYERS SQUIBB COMPANY-BMS-2016-095933

PATIENT
  Age: 61 Year
  Sex: Male
  Weight: 91.8 kg

DRUGS (1)
  1. ELIQUIS [Suspect]
     Active Substance: APIXABAN
     Indication: CEREBROVASCULAR ACCIDENT PROPHYLAXIS
     Dosage: 5 MG, BID
     Route: 048
     Dates: start: 201607, end: 20160814

REACTIONS (7)
  - Acute kidney injury [Unknown]
  - Packed red blood cell transfusion [Unknown]
  - Overdose [Unknown]
  - Cardiac tamponade [Recovering/Resolving]
  - Cardiogenic shock [Recovering/Resolving]
  - Haemoglobin decreased [Unknown]
  - Pericardial haemorrhage [Recovering/Resolving]

NARRATIVE: CASE EVENT DATE: 20160814
